FAERS Safety Report 18103596 (Version 3)
Quarter: 2022Q1

REPORT INFORMATION
  Report Type: Spontaneous
  Country: US (occurrence: US)
  Receive Date: 20200803
  Receipt Date: 20220225
  Transmission Date: 20220423
  Serious: No
  Sender: FDA-Public Use
  Company Number: US-PFIZER INC-2020117051

PATIENT
  Age: 75 Year
  Sex: Male

DRUGS (3)
  1. XELJANZ [Suspect]
     Active Substance: TOFACITINIB CITRATE
     Dosage: 30 MG, 1X/DAY (10 MG BID, 5 MG BID)
  2. XELJANZ [Suspect]
     Active Substance: TOFACITINIB CITRATE
     Dosage: 5 MG, 2X/DAY(5 MG PO BID, 90-DAY SUPPLY )
     Route: 048
  3. XELJANZ [Suspect]
     Active Substance: TOFACITINIB CITRATE
     Dosage: 10 MG, 2X/DAY(10 MG PO BID, 30-DAY SUPPLY)
     Route: 048

REACTIONS (3)
  - Prescribed overdose [Unknown]
  - Fatigue [Unknown]
  - Asthenia [Unknown]
